APPROVED DRUG PRODUCT: PARNATE
Active Ingredient: TRANYLCYPROMINE SULFATE
Strength: EQ 10MG BASE
Dosage Form/Route: TABLET;ORAL
Application: N012342 | Product #003 | TE Code: AB
Applicant: ADVANZ PHARMA (US) CORP
Approved: Aug 16, 1985 | RLD: Yes | RS: Yes | Type: RX